FAERS Safety Report 24877473 (Version 1)
Quarter: 2025Q1

REPORT INFORMATION
  Report Type: Spontaneous
  Country: SI (occurrence: SI)
  Receive Date: 20250123
  Receipt Date: 20250123
  Transmission Date: 20250409
  Serious: Yes (Other)
  Sender: BOEHRINGER INGELHEIM
  Company Number: SI-MYLANLABS-2025M1003453

PATIENT
  Age: 72 Year
  Sex: Male

DRUGS (4)
  1. DABIGATRAN [Suspect]
     Active Substance: DABIGATRAN
     Indication: Product used for unknown indication
  2. TEGRETOL [Suspect]
     Active Substance: CARBAMAZEPINE
     Indication: Pain in extremity
  3. PREGABALIN [Suspect]
     Active Substance: PREGABALIN
     Indication: Pain in extremity
  4. AMITRIPTYLINE [Suspect]
     Active Substance: AMITRIPTYLINE
     Indication: Pain in extremity

REACTIONS (2)
  - Hemiparesis [Unknown]
  - Cerebral haemorrhage [Unknown]
